FAERS Safety Report 15894277 (Version 1)
Quarter: 2019Q1

REPORT INFORMATION
  Report Type: Spontaneous
  Country: US (occurrence: US)
  Receive Date: 20190131
  Receipt Date: 20190131
  Transmission Date: 20190417
  Serious: Yes (Death, Other)
  Sender: FDA-Public Use
  Company Number: US-SAKK-2019SA025618AA

PATIENT
  Age: 57 Year
  Sex: Male
  Weight: 53 kg

DRUGS (1)
  1. FABRAZYME [Suspect]
     Active Substance: AGALSIDASE BETA
     Dosage: UNK UNK, UNK
     Route: 041

REACTIONS (2)
  - Cardiac arrest [Fatal]
  - End stage renal disease [Unknown]

NARRATIVE: CASE EVENT DATE: 20190118
